FAERS Safety Report 6696612-5 (Version None)
Quarter: 2010Q2

REPORT INFORMATION
  Report Type: 
  Country: None (occurrence: None)
  Receive Date: 20100426
  Receipt Date: 20100419
  Transmission Date: 20101027
  Serious: Yes (Other)
  Sender: FDA-Public Use
  Company Number: A0855702A

PATIENT
  Age: 67 Year
  Sex: Female

DRUGS (13)
  1. ARIXTRA [Suspect]
     Indication: DEEP VEIN THROMBOSIS
     Dosage: 1INJ PER DAY
     Route: 058
     Dates: start: 20100410, end: 20100413
  2. COUMADIN [Concomitant]
  3. ESTRADIOL [Concomitant]
  4. SPIRIVA [Concomitant]
  5. ADVAIR DISKUS 100/50 [Concomitant]
  6. UNKNOWN MEDICATION [Concomitant]
  7. KAPIDEX [Concomitant]
  8. SINGULAIR [Concomitant]
  9. CENTRUM MULTIVITAMINS [Concomitant]
  10. OMEGA FISH OIL [Concomitant]
  11. GARLIC [Concomitant]
  12. PHYTOSTEROL [Concomitant]
  13. SOY [Concomitant]

REACTIONS (2)
  - BLOOD TEST ABNORMAL [None]
  - COAGULOPATHY [None]
